FAERS Safety Report 7920622 (Version 3)
Quarter: 2013Q2

REPORT INFORMATION
  Report Type: Spontaneous
  Country: US (occurrence: US)
  Receive Date: 20110429
  Receipt Date: 20130524
  Transmission Date: 20140414
  Serious: Yes (Hospitalization, Other)
  Sender: FDA-Public Use
  Company Number: US-ROCHE-743258

PATIENT
  Sex: Male
  Weight: 102.1 kg

DRUGS (2)
  1. ACCUTANE [Suspect]
     Indication: ACNE
     Route: 065
     Dates: start: 19940101, end: 19950101
  2. ACCUTANE [Suspect]
     Dosage: FOR 06 MONTHS
     Route: 065
     Dates: start: 1998, end: 1999

REACTIONS (8)
  - Crohn^s disease [Unknown]
  - Gastrointestinal injury [Unknown]
  - Emotional distress [Unknown]
  - Colitis ulcerative [Unknown]
  - Inflammatory bowel disease [Unknown]
  - Fistula [Unknown]
  - Depression [Unknown]
  - Irritable bowel syndrome [Unknown]
